FAERS Safety Report 4353993-5 (Version None)
Quarter: 2004Q2

REPORT INFORMATION
  Report Type: 
  Country: None (occurrence: None)
  Receive Date: 20040506
  Receipt Date: 20040319
  Transmission Date: 20050107
  Serious: No
  Sender: FDA-Public Use
  Company Number: US-GLAXOSMITHKLINE-A0503534A

PATIENT
  Age: 75 Year
  Sex: Female

DRUGS (12)
  1. AVANDAMET [Suspect]
     Dosage: 2MG TWICE PER DAY
     Route: 048
     Dates: start: 20040214
  2. LEVOXYL [Concomitant]
  3. METOPROLOL SUCCINATE [Concomitant]
  4. VITAMIN B COMPLEX CAP [Concomitant]
  5. CALCIUM WITH VITAMIN D [Concomitant]
  6. GLUCOTROL [Concomitant]
  7. ASPIRIN [Concomitant]
  8. NITROGLYCERIN [Concomitant]
  9. SPIRONOLACTONE/HYDROCHLOROTHIAZIDE [Concomitant]
  10. MULTIVITAMIN [Concomitant]
  11. LIPITOR [Concomitant]
  12. VITAMIN E [Concomitant]

REACTIONS (4)
  - BLOOD GLUCOSE INCREASED [None]
  - CHEST PAIN [None]
  - OEDEMA PERIPHERAL [None]
  - WEIGHT INCREASED [None]
